FAERS Safety Report 6626233-1 (Version None)
Quarter: 2010Q1

REPORT INFORMATION
  Report Type: 
  Country: None (occurrence: None)
  Receive Date: 20100310
  Receipt Date: 20100301
  Transmission Date: 20100710
  Serious: Yes (Death, Other)
  Sender: FDA-Public Use
  Company Number: US-BAXTER-2010BH003527

PATIENT
  Age: 52 Year

DRUGS (2)
  1. HEPARIN SODIUM INJECTION [Suspect]
     Indication: DIALYSIS
     Route: 065
     Dates: start: 20080217
  2. HEPARIN SODIUM INJECTION [Suspect]
     Route: 065
     Dates: start: 20080218

REACTIONS (2)
  - DEATH [None]
  - HYPERSENSITIVITY [None]
